FAERS Safety Report 8818860 (Version 5)
Quarter: 2013Q2

REPORT INFORMATION
  Report Type: Spontaneous
  Country: JP (occurrence: JP)
  Receive Date: 20121001
  Receipt Date: 20130606
  Transmission Date: 20140414
  Serious: Yes (Death, Other)
  Sender: FDA-Public Use
  Company Number: JP-JNJFOC-20120913124

PATIENT
  Age: 63 Year
  Sex: Male
  Weight: 68 kg

DRUGS (29)
  1. RISPERDAL CONSTA [Suspect]
     Indication: SUBSTANCE-INDUCED PSYCHOTIC DISORDER
     Route: 030
     Dates: start: 20090710, end: 20100117
  2. RISPERDAL CONSTA [Suspect]
     Indication: SUBSTANCE-INDUCED PSYCHOTIC DISORDER
     Route: 030
     Dates: start: 20100118, end: 20110224
  3. RISPERDAL CONSTA [Suspect]
     Indication: SUBSTANCE-INDUCED PSYCHOTIC DISORDER
     Route: 030
     Dates: start: 20110225
  4. RISPERDAL CONSTA [Suspect]
     Indication: SUBSTANCE-INDUCED PSYCHOTIC DISORDER
     Route: 030
     Dates: start: 2010
  5. RISPERDAL [Suspect]
     Indication: SUBSTANCE-INDUCED PSYCHOTIC DISORDER
     Route: 048
     Dates: start: 20090520, end: 20090907
  6. SILECE [Concomitant]
     Indication: SLEEP DISORDER
     Route: 048
     Dates: start: 20091116, end: 20100509
  7. LONASEN [Concomitant]
     Indication: SUBSTANCE-INDUCED PSYCHOTIC DISORDER
     Route: 048
     Dates: start: 20120817
  8. DEPAKENE-R [Concomitant]
     Indication: DEPRESSION
     Route: 048
     Dates: start: 20090525, end: 20090927
  9. DEPAKENE-R [Concomitant]
     Indication: SUBSTANCE-INDUCED PSYCHOTIC DISORDER
     Route: 048
     Dates: start: 20090525, end: 20090927
  10. LIMAS [Concomitant]
     Indication: DEPRESSION
     Route: 048
     Dates: start: 20091221, end: 20120716
  11. LIMAS [Concomitant]
     Indication: DEPRESSION
     Route: 048
     Dates: start: 20090928, end: 20091220
  12. LIMAS [Concomitant]
     Indication: SUBSTANCE-INDUCED PSYCHOTIC DISORDER
     Route: 048
     Dates: start: 20091221, end: 20120716
  13. LIMAS [Concomitant]
     Indication: SUBSTANCE-INDUCED PSYCHOTIC DISORDER
     Route: 048
     Dates: start: 20090928, end: 20091220
  14. HALCION [Concomitant]
     Indication: SLEEP DISORDER
     Route: 048
     Dates: start: 20090612, end: 20091115
  15. HALCION [Concomitant]
     Indication: SLEEP DISORDER
     Route: 048
     Dates: start: 20091207, end: 20111010
  16. BENZALIN [Concomitant]
     Indication: SLEEP DISORDER
     Route: 048
     Dates: start: 20090612, end: 20091206
  17. DORAL [Concomitant]
     Indication: SLEEP DISORDER
     Route: 048
     Dates: start: 20100510, end: 20111013
  18. HIRNAMIN (LEVOPROMAZINE MALEATE) [Concomitant]
     Indication: SLEEP DISORDER
     Route: 048
     Dates: start: 20111013, end: 20111030
  19. VEGETAMIN-A [Concomitant]
     Indication: SLEEP DISORDER
     Route: 048
     Dates: start: 20110711, end: 20111023
  20. SEROQUEL [Concomitant]
     Indication: SLEEP DISORDER
     Route: 048
     Dates: start: 20120702, end: 20120809
  21. SEROQUEL [Concomitant]
     Indication: SLEEP DISORDER
     Route: 048
     Dates: start: 20111105, end: 20111204
  22. SEROQUEL [Concomitant]
     Indication: SLEEP DISORDER
     Route: 048
     Dates: start: 20120810
  23. SEROQUEL [Concomitant]
     Indication: SUBSTANCE-INDUCED PSYCHOTIC DISORDER
     Route: 048
     Dates: start: 20120810
  24. SEROQUEL [Concomitant]
     Indication: SUBSTANCE-INDUCED PSYCHOTIC DISORDER
     Route: 048
     Dates: start: 20111105, end: 20111204
  25. SEROQUEL [Concomitant]
     Indication: SUBSTANCE-INDUCED PSYCHOTIC DISORDER
     Route: 048
     Dates: start: 20120702, end: 20120809
  26. ZYPREXA [Concomitant]
     Indication: SLEEP DISORDER
     Route: 048
     Dates: start: 20111205, end: 20120702
  27. ZYPREXA [Concomitant]
     Indication: SUBSTANCE-INDUCED PSYCHOTIC DISORDER
     Route: 048
     Dates: start: 20111205, end: 20120702
  28. TETRAMIDE [Concomitant]
     Indication: DEPRESSION
     Route: 048
     Dates: start: 20120810
  29. TETRAMIDE [Concomitant]
     Indication: SLEEP DISORDER
     Route: 048
     Dates: start: 20120810

REACTIONS (3)
  - Completed suicide [Fatal]
  - Depression [Unknown]
  - Tremor [Recovering/Resolving]
